FAERS Safety Report 19870285 (Version 1)
Quarter: 2021Q3

REPORT INFORMATION
  Report Type: Spontaneous
  Country: DE (occurrence: DE)
  Receive Date: 20210923
  Receipt Date: 20210923
  Transmission Date: 20211014
  Serious: Yes (Death, Hospitalization, Other)
  Sender: FDA-Public Use
  Company Number: DE-AUROBINDO-AUR-APL-2018-042353

PATIENT
  Sex: Female
  Weight: 60 kg

DRUGS (5)
  1. LETROZOLE. [Suspect]
     Active Substance: LETROZOLE
     Dosage: UNK
  2. KISQALI [Suspect]
     Active Substance: RIBOCICLIB
     Indication: BREAST CANCER
     Dosage: 600 MG, UNK (0?3?)
     Route: 048
     Dates: start: 20180710
  3. KISQALI [Suspect]
     Active Substance: RIBOCICLIB
     Indication: BREAST CANCER METASTATIC
  4. LETROZOLE. [Suspect]
     Active Substance: LETROZOLE
     Indication: BREAST CANCER METASTATIC
     Dosage: 2.5 MILLIGRAM, ONCE A DAY 2.5 MG, QD (1?0?0)
     Route: 048
     Dates: start: 20180423
  5. KISQALI [Suspect]
     Active Substance: RIBOCICLIB
     Indication: HER2 POSITIVE BREAST CANCER
     Dosage: 600 MILLIGRAM, ONCE A DAY 600 MG, QD (SCHEMA, 21 DAYS INTAKE THAN 7 DAYS PAUSE)
     Route: 048
     Dates: start: 20180423

REACTIONS (6)
  - Abdominal pain [Fatal]
  - Haemoglobin decreased [Recovered/Resolved]
  - Insomnia [Not Recovered/Not Resolved]
  - Ascites [Fatal]
  - Diarrhoea [Not Recovered/Not Resolved]
  - Urinary tract infection [Recovered/Resolved]

NARRATIVE: CASE EVENT DATE: 20180710
